FAERS Safety Report 9449683 (Version 1)
Quarter: 2013Q3

REPORT INFORMATION
  Report Type: Spontaneous
  Country: US (occurrence: US)
  Receive Date: 20130809
  Receipt Date: 20130809
  Transmission Date: 20140515
  Serious: No
  Sender: FDA-Public Use
  Company Number: US-BAYER-2013-092985

PATIENT
  Age: 36 Year
  Sex: Female
  Weight: 76.19 kg

DRUGS (4)
  1. BETASERON [Suspect]
     Dosage: 0.25 MG, QOD
     Route: 058
  2. BIOTIN [Concomitant]
     Dosage: 10 MG, UNK
  3. VITAMIN D [Concomitant]
     Dosage: 1000 U, UNK
  4. PREDNISOLONE [Concomitant]
     Dosage: 1 UNK, UNK

REACTIONS (6)
  - Injection site mass [Unknown]
  - Injection site ulcer [Unknown]
  - Injection site bruising [Unknown]
  - Local swelling [Unknown]
  - Hot flush [Unknown]
  - Pyrexia [Unknown]
